FAERS Safety Report 9007193 (Version 1)
Quarter: 2013Q1

REPORT INFORMATION
  Report Type: Spontaneous
  Country: US (occurrence: US)
  Receive Date: 20130110
  Receipt Date: 20130110
  Transmission Date: 20140127
  Serious: Yes (Hospitalization)
  Sender: FDA-Public Use
  Company Number: US-GLAXOSMITHKLINE-A1007685A

PATIENT
  Age: 65 Year
  Sex: Male

DRUGS (2)
  1. ARZERRA [Suspect]
     Indication: CHRONIC LYMPHOCYTIC LEUKAEMIA
     Dosage: 2000MG WEEKLY
     Route: 042
     Dates: start: 20121218
  2. NO CONCURRENT MEDICATION [Concomitant]

REACTIONS (4)
  - Infusion related reaction [Unknown]
  - Blood pressure decreased [Unknown]
  - Chest pain [Unknown]
  - Urticaria [Unknown]
